FAERS Safety Report 8012296-8 (Version None)
Quarter: 2011Q4

REPORT INFORMATION
  Report Type: 
  Country: None (occurrence: None)
  Receive Date: 20111228
  Receipt Date: 20111219
  Transmission Date: 20120403
  Serious: Yes (Death)
  Sender: FDA-Public Use
  Company Number: US-PFIZER INC-2011311527

PATIENT
  Age: 21 Year
  Sex: Female

DRUGS (2)
  1. ETHANOL [Suspect]
     Dosage: UNK
     Dates: start: 20100101
  2. DEXTROMETHORPHAN AND DEXTROMETHORPHAN HYDROBROMIDE AND GUAIFENESIN [Suspect]
     Dosage: UNK
     Dates: start: 20100101

REACTIONS (3)
  - RESPIRATORY ARREST [None]
  - DRUG ABUSE [None]
  - CARDIAC ARREST [None]
